FAERS Safety Report 8811032 (Version 1)
Quarter: 2012Q4

REPORT INFORMATION
  Report Type: 
  Country: US (occurrence: US)
  Receive Date: 20120927
  Receipt Date: 20120927
  Transmission Date: 20130627
  Serious: Yes (Other)
  Sender: FDA-Public Use
  Company Number: US-NAPPMUNDI-USA-2012-0093383

PATIENT
  Age: 70 Year
  Sex: Male

DRUGS (2)
  1. BUTRANS [Suspect]
     Indication: PRODUCT USED FOR UNKNOWN INDICATION
     Dosage: 10 mcg/hr, UNK
     Route: 062
  2. HYDROCODONE                        /00060002/ [Concomitant]

REACTIONS (3)
  - Pneumonia [Unknown]
  - Disorientation [Unknown]
  - Confusional state [Unknown]
